FAERS Safety Report 4967075-2 (Version None)
Quarter: 2006Q2

REPORT INFORMATION
  Report Type: 
  Country: None (occurrence: None)
  Receive Date: 20060408
  Receipt Date: 20060330
  Transmission Date: 20061013
  Serious: Yes (Hospitalization)
  Sender: FDA-Public Use
  Company Number: FR-ABBOTT-06P-056-0329513-00

PATIENT
  Sex: Male

DRUGS (3)
  1. LIPANTHYL TABLETS [Suspect]
     Indication: HYPERCHOLESTEROLAEMIA
     Route: 048
     Dates: start: 20010101, end: 20060301
  2. MONONAXY [Suspect]
     Indication: DRUG USE FOR UNKNOWN INDICATION
     Dates: start: 20060301, end: 20060301
  3. QUINAPRIL [Concomitant]
     Indication: HYPERTENSION

REACTIONS (5)
  - BRONCHITIS ACUTE [None]
  - DRUG INTERACTION [None]
  - HEADACHE [None]
  - MYALGIA [None]
  - RHABDOMYOLYSIS [None]
